FAERS Safety Report 7098794-2 (Version None)
Quarter: 2010Q4

REPORT INFORMATION
  Report Type: 
  Country: None (occurrence: None)
  Receive Date: 20101112
  Receipt Date: 20101104
  Transmission Date: 20110411
  Serious: Yes (Hospitalization)
  Sender: FDA-Public Use
  Company Number: AU-CELGENEUS-008-C5013-08060954

PATIENT
  Sex: Male

DRUGS (6)
  1. CC-5013 [Suspect]
     Indication: MULTIPLE MYELOMA
     Route: 048
     Dates: start: 20080519, end: 20080616
  2. CC-5013 [Suspect]
     Route: 048
     Dates: start: 20080714
  3. CC-5013 [Suspect]
     Route: 048
     Dates: start: 20080307, end: 20080519
  4. DEXAMETHASONE [Suspect]
     Indication: MULTIPLE MYELOMA
     Route: 065
     Dates: start: 20080519
  5. MELPHALAN HYDROCHLORIDE [Suspect]
     Indication: MULTIPLE MYELOMA
     Route: 065
     Dates: start: 20080307, end: 20080519
  6. PREDNISONE [Suspect]
     Indication: MULTIPLE MYELOMA
     Route: 065
     Dates: start: 20080307, end: 20080519

REACTIONS (2)
  - CRYPTOCOCCOSIS [None]
  - FATIGUE [None]
